FAERS Safety Report 13639300 (Version 1)
Quarter: 2017Q2

REPORT INFORMATION
  Report Type: Spontaneous
  Country: US (occurrence: US)
  Receive Date: 20170609
  Receipt Date: 20170609
  Transmission Date: 20170830
  Serious: Yes (Life-Threatening, Other)
  Sender: FDA-Public Use
  Company Number: US-ROCHE-696558

PATIENT
  Age: 48 Year
  Sex: Female
  Weight: 50.8 kg

DRUGS (1)
  1. KLONOPIN [Suspect]
     Active Substance: CLONAZEPAM
     Indication: ANXIETY
     Dosage: OTHER INDICATION: CHRONIC PAIN
     Route: 048

REACTIONS (3)
  - Seizure [Recovered/Resolved]
  - Drug use disorder [Unknown]
  - Drug withdrawal syndrome [Unknown]

NARRATIVE: CASE EVENT DATE: 20100302
